FAERS Safety Report 12072750 (Version 1)
Quarter: 2016Q1

REPORT INFORMATION
  Report Type: Spontaneous
  Country: GB (occurrence: GB)
  Receive Date: 20160212
  Receipt Date: 20160212
  Transmission Date: 20160526
  Serious: Yes (Congenital Anomaly)
  Sender: FDA-Public Use
  Company Number: GB-VELOXIS PHARMACEUTICALS-1047738

PATIENT

DRUGS (3)
  1. URSODEOXYCHOLIC ACID [Concomitant]
     Active Substance: URSODIOL
     Route: 064
  2. BUDESONIDE. [Concomitant]
     Active Substance: BUDESONIDE
     Route: 064
  3. ENVARSUS XR [Suspect]
     Active Substance: TACROLIMUS
     Indication: EXPOSURE DURING PREGNANCY
     Route: 064

REACTIONS (8)
  - Teratogenicity [Not Recovered/Not Resolved]
  - Neural tube defect [Not Recovered/Not Resolved]
  - Spinal disorder [Not Recovered/Not Resolved]
  - Exomphalos [Not Recovered/Not Resolved]
  - Spine malformation [Not Recovered/Not Resolved]
  - Iniencephaly [Not Recovered/Not Resolved]
  - Multiple congenital abnormalities [Unknown]
  - Foetal exposure during pregnancy [Not Recovered/Not Resolved]
